FAERS Safety Report 14923515 (Version 1)
Quarter: 2018Q2

REPORT INFORMATION
  Report Type: Spontaneous
  Country: US (occurrence: US)
  Receive Date: 20180522
  Receipt Date: 20180522
  Transmission Date: 20180711
  Serious: Yes (Other)
  Sender: FDA-Public Use
  Company Number: US-COOPERSURGICAL, INC.-US-2018CPS031946

PATIENT

DRUGS (1)
  1. PARAGARD T 380A [Suspect]
     Active Substance: COPPER
     Indication: PRODUCT USED FOR UNKNOWN INDICATION
     Dosage: UNK
     Route: 015
     Dates: start: 201609, end: 201710

REACTIONS (5)
  - Dermatitis allergic [Recovered/Resolved]
  - Allergy to metals [Not Recovered/Not Resolved]
  - Pruritus [Recovered/Resolved]
  - Genital rash [Recovered/Resolved]
  - Vulvovaginal pruritus [None]

NARRATIVE: CASE EVENT DATE: 2016
